FAERS Safety Report 15756583 (Version 1)
Quarter: 2018Q4

REPORT INFORMATION
  Report Type: Spontaneous
  Country: US (occurrence: US)
  Receive Date: 20181206
  Receipt Date: 20181206
  Transmission Date: 20190205
  Serious: Yes (Hospitalization)
  Sender: FDA-Public Use
  Company Number: None

PATIENT
  Age: 35 Year
  Sex: Male
  Weight: 98.5 kg

DRUGS (3)
  1. CYCLOPHOSPHAMIDE. [Suspect]
     Active Substance: CYCLOPHOSPHAMIDE
     Dates: end: 20181107
  2. METHOTREXATE. [Suspect]
     Active Substance: METHOTREXATE
     Dates: end: 20181115
  3. CYTARABINE. [Suspect]
     Active Substance: CYTARABINE
     Dates: end: 20181117

REACTIONS (12)
  - Fatigue [None]
  - Vomiting [None]
  - Septic shock [None]
  - Hypotension [None]
  - Pyrexia [None]
  - Tachycardia [None]
  - Nausea [None]
  - Decreased appetite [None]
  - Chills [None]
  - Constipation [None]
  - Anaemia [None]
  - Blood lactic acid increased [None]

NARRATIVE: CASE EVENT DATE: 20181129
